FAERS Safety Report 8451006-7 (Version None)
Quarter: 2012Q2

REPORT INFORMATION
  Report Type: 
  Country: None (occurrence: None)
  Receive Date: 20120620
  Receipt Date: 20120612
  Transmission Date: 20120825
  Serious: Yes (Hospitalization)
  Sender: FDA-Public Use
  Company Number: US-ROCHE-1060566

PATIENT
  Sex: Male

DRUGS (10)
  1. LEVETIRACETAM [Concomitant]
     Dates: start: 20120513
  2. ACETAMINOPHEN [Concomitant]
     Dates: start: 20111006
  3. MOMETASONE FUROATE [Concomitant]
     Dates: start: 20120329
  4. AVASTIN [Suspect]
     Indication: MALIGNANT GLIOMA
     Dosage: LAST DOSE RECEIVED ON 29/MAY/2012
     Route: 065
     Dates: start: 20111014
  5. BIMATOPROST [Concomitant]
     Dates: start: 20111110
  6. DOCUSATE WITH CASANTHRANOL [Concomitant]
     Dates: start: 20120413, end: 20120417
  7. CLINDAMYCIN [Concomitant]
     Dates: start: 20111216, end: 20120529
  8. AVASTIN [Suspect]
     Route: 065
     Dates: start: 20120329
  9. KETOCONAZOLE [Concomitant]
     Dates: start: 20111216, end: 20120529
  10. DEXAMETHASONE [Concomitant]
     Dates: start: 20120529

REACTIONS (4)
  - CONVULSION [None]
  - PYREXIA [None]
  - APHASIA [None]
  - LETHARGY [None]
